FAERS Safety Report 12428123 (Version 1)
Quarter: 2016Q2

REPORT INFORMATION
  Report Type: Spontaneous
  Country: JP (occurrence: JP)
  Receive Date: 20160602
  Receipt Date: 20160602
  Transmission Date: 20160815
  Serious: Yes (Hospitalization)
  Sender: FDA-Public Use
  Company Number: PHJP2016JP014350

PATIENT
  Age: 79 Year
  Sex: Female

DRUGS (1)
  1. EXELON PATCH [Suspect]
     Active Substance: RIVASTIGMINE
     Indication: PRODUCT USED FOR UNKNOWN INDICATION
     Dosage: 1.9 MG, QD (PATCH2.5, RIVASTIGMINE BASE 4.5 MG)
     Route: 062

REACTIONS (3)
  - Cerebral infarction [Unknown]
  - Hemiplegia [Unknown]
  - Application site erythema [Unknown]
